FAERS Safety Report 6982395-8 (Version None)
Quarter: 2010Q3

REPORT INFORMATION
  Report Type: 
  Country: None (occurrence: None)
  Receive Date: 20100914
  Receipt Date: 20100128
  Transmission Date: 20110219
  Serious: Yes (Other)
  Sender: FDA-Public Use
  Company Number: US-PFIZER INC-2009306745

PATIENT
  Sex: Female
  Weight: 50.34 kg

DRUGS (10)
  1. LYRICA [Suspect]
     Indication: FIBROMYALGIA
     Dosage: 300 MG IN AM, AND TWO 300 MG TABLETS AT NITE
     Dates: start: 20080101
  2. LYRICA [Suspect]
     Indication: NEURALGIA
     Dosage: 25 MG, 2X/DAY
     Dates: start: 20080101
  3. FOSAMAX [Concomitant]
     Indication: OSTEOPOROSIS
     Dosage: UNK, WEEKLY
  4. KLONOPIN [Concomitant]
     Indication: SLEEP DISORDER
     Dosage: UNK, AS NEEDED
     Dates: start: 20010101
  5. PREMARIN [Concomitant]
     Dosage: UNK
  6. FIORINAL [Concomitant]
     Indication: HEADACHE
     Dosage: UNK, AS NEEDED
  7. SYNTHROID [Concomitant]
     Indication: HYPOTHYROIDISM
     Dosage: UNK
  8. VITAMIN D [Concomitant]
     Indication: OSTEOPOROSIS
     Dosage: UNK
  9. PERCOCET [Concomitant]
     Dosage: UNK
     Dates: start: 20050101
  10. FLEXERIL [Concomitant]
     Dosage: UNK
     Dates: start: 20050101

REACTIONS (7)
  - DRUG DISPENSING ERROR [None]
  - DYSKINESIA [None]
  - MUSCULAR WEAKNESS [None]
  - OEDEMA PERIPHERAL [None]
  - PAIN [None]
  - PAIN IN EXTREMITY [None]
  - WEIGHT INCREASED [None]
